FAERS Safety Report 20489673 (Version 3)
Quarter: 2025Q1

REPORT INFORMATION
  Report Type: Report from Study
  Country: US (occurrence: US)
  Receive Date: 20220218
  Receipt Date: 20250113
  Transmission Date: 20250409
  Serious: Yes (Hospitalization)
  Sender: ELI LILLY AND COMPANY
  Company Number: US-ELI_LILLY_AND_COMPANY-US202111003191

PATIENT
  Age: 85 Year
  Sex: Male

DRUGS (7)
  1. INSULIN GLARGINE [Suspect]
     Active Substance: INSULIN GLARGINE
     Route: 065
     Dates: start: 20200707
  2. INSULIN GLARGINE [Suspect]
     Active Substance: INSULIN GLARGINE
     Route: 065
  3. HUMALOG [Suspect]
     Active Substance: INSULIN LISPRO
     Indication: Product used for unknown indication
     Route: 065
  4. HUMALOG [Suspect]
     Active Substance: INSULIN LISPRO
     Route: 065
  5. HUMALOG [Suspect]
     Active Substance: INSULIN LISPRO
     Route: 065
     Dates: start: 20200707
  6. HUMALOG [Suspect]
     Active Substance: INSULIN LISPRO
     Route: 065
  7. TYLENOL [Suspect]
     Active Substance: ACETAMINOPHEN
     Indication: Product used for unknown indication
     Route: 065

REACTIONS (12)
  - Fluid retention [Unknown]
  - Fall [Unknown]
  - Balance disorder [Unknown]
  - Hypoacusis [Unknown]
  - Nasopharyngitis [Recovered/Resolved]
  - Oropharyngeal pain [Unknown]
  - Blood glucose increased [Recovering/Resolving]
  - Fatigue [Unknown]
  - Blood glucose decreased [Unknown]
  - Peripheral swelling [Unknown]
  - Illness [Unknown]
  - Cystitis [Unknown]

NARRATIVE: CASE EVENT DATE: 20211101
